FAERS Safety Report 9322331 (Version 4)
Quarter: 2014Q2

REPORT INFORMATION
  Report Type: Spontaneous
  Country: FR (occurrence: None)
  Receive Date: 20130529
  Receipt Date: 20140410
  Transmission Date: 20141212
  Serious: Yes (Hospitalization)
  Sender: FDA-Public Use
  Company Number: 2012FR000858

PATIENT
  Age: 56 Year
  Sex: Male
  Weight: 76 kg

DRUGS (5)
  1. PONATINIB [Suspect]
     Indication: CHRONIC MYELOID LEUKAEMIA
     Route: 048
     Dates: start: 20110616, end: 20130129
  2. LERCAPRESS (ENALAPRIL MALEATE, LERCANIDIPINE HYDROCHLORIDE) [Concomitant]
  3. PRAVADUAL (ACETYLSALICYLIC ACID, PRAVASTATIN SODIUM) [Concomitant]
  4. SECTRAL (ACEBUTOLOL HYDROCHLORIDE) [Concomitant]
  5. PLAVIX (CLOPIDOGREL BISULFATE) [Concomitant]

REACTIONS (2)
  - Coronary artery disease [None]
  - Myocardial ischaemia [None]
